FAERS Safety Report 19505968 (Version 1)
Quarter: 2021Q3

REPORT INFORMATION
  Report Type: Spontaneous
  Country: US (occurrence: US)
  Receive Date: 20210707
  Receipt Date: 20210707
  Transmission Date: 20211014
  Serious: Yes (Hospitalization)
  Sender: FDA-Public Use
  Company Number: None

PATIENT
  Sex: Male

DRUGS (8)
  1. GLATIRAMER 20MG/ML SYR [Suspect]
     Active Substance: GLATIRAMER ACETATE
     Indication: MULTIPLE SCLEROSIS
     Route: 058
     Dates: start: 20180426
  2. MYRBETRIQ [Concomitant]
     Active Substance: MIRABEGRON
  3. DALFAMPRIDINE 10MG ER TAB [Suspect]
     Active Substance: DALFAMPRIDINE
     Indication: MULTIPLE SCLEROSIS
     Route: 048
     Dates: start: 20181012
  4. BUPROPION. [Concomitant]
     Active Substance: BUPROPION
  5. SYNVISC [Concomitant]
     Active Substance: HYLAN G-F 20
  6. MELOXICAM. [Concomitant]
     Active Substance: MELOXICAM
  7. SIMVASTATIN. [Concomitant]
     Active Substance: SIMVASTATIN
  8. VITAMIN D3 [Concomitant]
     Active Substance: CHOLECALCIFEROL

REACTIONS (2)
  - Fatigue [None]
  - Food poisoning [None]
